FAERS Safety Report 20485585 (Version 3)
Quarter: 2023Q4

REPORT INFORMATION
  Report Type: Report from Study
  Country: CA (occurrence: CA)
  Receive Date: 20220217
  Receipt Date: 20231220
  Transmission Date: 20240110
  Serious: Yes (Other)
  Sender: FDA-Public Use
  Company Number: CA-BAUSCH-BL-2021-002135

PATIENT
  Age: 61 Year
  Sex: Male

DRUGS (5)
  1. SILIQ [Suspect]
     Active Substance: BRODALUMAB
     Indication: Psoriasis
     Dosage: 210MG/ 1.5 ML, WEEKLY (WEEK 0,1,2)
     Route: 058
     Dates: start: 20201231, end: 20210114
  2. SILIQ [Suspect]
     Active Substance: BRODALUMAB
     Dosage: 210MG/1.5ML
     Route: 058
     Dates: start: 202101
  3. SILIQ [Suspect]
     Active Substance: BRODALUMAB
     Dosage: 210MG/1.5ML, Q 2 WEEKS
     Route: 058
     Dates: start: 20220128
  4. SILIQ [Suspect]
     Active Substance: BRODALUMAB
     Dosage: 210MG/1.5ML, Q 2 WEEKS
     Route: 058
     Dates: start: 20231214
  5. TWYNSTA [Concomitant]
     Active Substance: AMLODIPINE BESYLATE\TELMISARTAN
     Indication: Anticoagulant therapy

REACTIONS (9)
  - Cyst [Unknown]
  - Foot fracture [Unknown]
  - Pruritus [Recovered/Resolved]
  - Erythema [Unknown]
  - Blood pressure increased [Unknown]
  - Rash [Unknown]
  - Acne [Recovered/Resolved]
  - Diarrhoea [Not Recovered/Not Resolved]
  - Intentional product use issue [Unknown]

NARRATIVE: CASE EVENT DATE: 20210101
